FAERS Safety Report 5574384-5 (Version None)
Quarter: 2007Q4

REPORT INFORMATION
  Report Type: 
  Country: None (occurrence: None)
  Receive Date: 20071221
  Receipt Date: 20071211
  Transmission Date: 20080405
  Serious: Yes (Other)
  Sender: FDA-Public Use
  Company Number: 2007PL000033

PATIENT
  Age: 11 Year
  Sex: Male
  Weight: 34.0198 kg

DRUGS (8)
  1. IMURAN [Suspect]
     Indication: IMMUNOSUPPRESSION
     Dosage: 50 MG;QOD;PO
     Route: 048
  2. PROGRAF [Suspect]
     Indication: IMMUNOSUPPRESSION
     Dosage: 2.5 MG;BID;PO
     Route: 048
  3. SAIZEN [Suspect]
     Indication: GROWTH HORMONE DEFICIENCY
     Dosage: 1.2 MG;QD;SC
     Route: 058
     Dates: start: 20071026
  4. VFEND [Concomitant]
  5. ACYCLOVIR [Concomitant]
  6. CORTEF [Concomitant]
  7. LEVAQUIN [Concomitant]
  8. PREDNISONE TAB [Concomitant]

REACTIONS (2)
  - GRAFT VERSUS HOST DISEASE [None]
  - SQUAMOUS CELL CARCINOMA [None]
